FAERS Safety Report 12191709 (Version 1)
Quarter: 2016Q1

REPORT INFORMATION
  Report Type: Spontaneous
  Country: JP (occurrence: JP)
  Receive Date: 20160318
  Receipt Date: 20160318
  Transmission Date: 20160526
  Serious: Yes (Hospitalization)
  Sender: FDA-Public Use
  Company Number: JP-TEVA-614838ACC

PATIENT
  Age: 71 Year
  Sex: Female

DRUGS (22)
  1. BENDAMUSTINE HYDROCHLORIDE [Suspect]
     Active Substance: BENDAMUSTINE HYDROCHLORIDE
     Dosage: 2/4 WEEKS
     Route: 042
     Dates: start: 20150520, end: 20150611
  2. EPRAZINONE HYDROCHLORIDE [Concomitant]
     Active Substance: EPRAZINONE HYDROCHLORIDE
     Indication: CHRONIC SINUSITIS
     Dosage: 180 MILLIGRAM DAILY;
     Route: 048
     Dates: start: 20150415, end: 20151031
  3. PALONOSETRON HYDROCHLORIDE. [Concomitant]
     Active Substance: PALONOSETRON HYDROCHLORIDE
     Indication: NAUSEA
     Dosage: .75 MILLIGRAM DAILY; 0.75 MG, ONCE DAILY
     Route: 041
     Dates: start: 20150610
  4. CLOPERASTINE FENDIZOATE [Concomitant]
     Indication: ANTITUSSIVE THERAPY
     Dosage: 1 DOSAGE FORMS DAILY;
     Route: 048
     Dates: start: 20150415, end: 20151031
  5. DEXAMETHASONE SODIUM PHOSPHATE. [Concomitant]
     Active Substance: DEXAMETHASONE SODIUM PHOSPHATE
     Indication: NAUSEA
     Dosage: 48 MILLIGRAM DAILY;
     Route: 041
     Dates: start: 20141224, end: 20150611
  6. LOXOPROFEN SODIUM [Concomitant]
     Active Substance: LOXOPROFEN SODIUM
     Indication: PAIN
     Dosage: 30 MILLIGRAM DAILY;
     Route: 048
     Dates: start: 20150415
  7. AMBROXOL HYDROCHLORIDE [Concomitant]
     Active Substance: AMBROXOL HYDROCHLORIDE
     Indication: ANTITUSSIVE THERAPY
     Dosage: 45 MILLIGRAM DAILY;
     Route: 048
     Dates: start: 20151008, end: 20151103
  8. ESOMEPRAZOLE MAGNESIUM. [Concomitant]
     Active Substance: ESOMEPRAZOLE MAGNESIUM
     Indication: GASTROOESOPHAGEAL REFLUX DISEASE
     Dosage: 20 MILLIGRAM DAILY;
     Route: 048
     Dates: start: 20131212, end: 20150912
  9. PEGFILGRASTIM [Concomitant]
     Active Substance: PEGFILGRASTIM
     Indication: NEUTROPENIA
     Dosage: 3.6 MILLIGRAM DAILY; 3.6 MG, ONCE DAILY
     Route: 058
     Dates: start: 20150522, end: 20150612
  10. BENDAMUSTINE HYDROCHLORIDE [Suspect]
     Active Substance: BENDAMUSTINE HYDROCHLORIDE
     Indication: B-CELL LYMPHOMA
     Dosage: 2/4 WEEKS
     Route: 042
     Dates: start: 20141224, end: 20141225
  11. BENDAMUSTINE HYDROCHLORIDE [Suspect]
     Active Substance: BENDAMUSTINE HYDROCHLORIDE
     Dosage: 2/4 WEEKS
     Route: 042
     Dates: start: 20150122, end: 20150123
  12. BENDAMUSTINE HYDROCHLORIDE [Suspect]
     Active Substance: BENDAMUSTINE HYDROCHLORIDE
     Dosage: 2/4 WEEKS
     Route: 042
     Dates: start: 20150416, end: 20150417
  13. BENDAMUSTINE HYDROCHLORIDE [Suspect]
     Active Substance: BENDAMUSTINE HYDROCHLORIDE
     Dosage: 2/4 WEEKS
     Route: 042
     Dates: start: 20150610, end: 20150611
  14. CLARITHROMYCIN. [Concomitant]
     Active Substance: CLARITHROMYCIN
     Indication: CHRONIC SINUSITIS
     Dosage: 200 MILLIGRAM DAILY;
     Route: 048
     Dates: start: 20150611, end: 20151031
  15. REBAMIPIDE [Concomitant]
     Active Substance: REBAMIPIDE
     Indication: GASTRITIS PROPHYLAXIS
     Dosage: 100 MILLIGRAM DAILY;
     Route: 048
     Dates: start: 20150619
  16. APREPITANT. [Concomitant]
     Active Substance: APREPITANT
     Indication: NAUSEA
     Dosage: 125MG, 80MG, 40MG, UNKNOWN FREQ.
     Route: 048
     Dates: start: 20141224, end: 20150612
  17. RITUXIMAB [Concomitant]
     Active Substance: RITUXIMAB
     Indication: B-CELL LYMPHOMA
     Dosage: (2/4 WEEKS)
     Route: 041
     Dates: start: 20141223
  18. RITUXIMAB [Concomitant]
     Active Substance: RITUXIMAB
     Dosage: (2/4 WEEKS)
     Route: 041
     Dates: start: 20150415
  19. SHAKUYAKUKANZOTO [Concomitant]
     Active Substance: HERBALS
     Indication: PAIN
     Dosage: 2.5 GRAM DAILY;
     Route: 048
     Dates: start: 20150603, end: 20151013
  20. RITUXIMAB [Concomitant]
     Active Substance: RITUXIMAB
     Dosage: (2/4 WEEKS)
     Route: 041
     Dates: start: 20150218
  21. SULFAMETHOXAZOLE-TRIMETHOPRIM (SMZ) [Concomitant]
     Active Substance: SULFAMETHOXAZOLE\TRIMETHOPRIM
     Indication: INFECTION PROPHYLAXIS
     Dosage: 1 DOSAGE FORMS DAILY;
     Route: 048
     Dates: start: 20131218, end: 20150806
  22. AZOSEMIDE [Concomitant]
     Active Substance: AZOSEMIDE
     Indication: OEDEMA
     Dosage: 30 MILLIGRAM DAILY;
     Route: 048
     Dates: start: 20150121, end: 20150801

REACTIONS (3)
  - Aplasia pure red cell [Recovering/Resolving]
  - Prescribed underdose [Unknown]
  - Rash papular [Recovering/Resolving]

NARRATIVE: CASE EVENT DATE: 20150715
